FAERS Safety Report 5782172-X (Version None)
Quarter: 2008Q2

REPORT INFORMATION
  Report Type: 
  Country: None (occurrence: None)
  Receive Date: 20080623
  Receipt Date: 20080606
  Transmission Date: 20081010
  Serious: Yes (Other)
  Sender: FDA-Public Use
  Company Number: JP-SANOFI-SYNTHELABO-A01200805468

PATIENT
  Age: 73 Year
  Sex: Male

DRUGS (3)
  1. LOCHOL [Concomitant]
     Indication: LACUNAR INFARCTION
     Dosage: UNK
     Route: 065
     Dates: start: 20080428
  2. LIPITOR [Concomitant]
     Indication: LACUNAR INFARCTION
     Dosage: UNK
     Route: 065
     Dates: start: 20080413, end: 20080428
  3. PLAVIX [Suspect]
     Indication: LACUNAR INFARCTION
     Route: 048
     Dates: start: 20080413

REACTIONS (1)
  - BLOOD POTASSIUM INCREASED [None]
